FAERS Safety Report 7546313-6 (Version None)
Quarter: 2011Q2

REPORT INFORMATION
  Report Type: 
  Country: None (occurrence: None)
  Receive Date: 20110614
  Receipt Date: 20110609
  Transmission Date: 20111010
  Serious: Yes (Other)
  Sender: FDA-Public Use
  Company Number: HU-PFIZER INC-2011127286

PATIENT
  Age: 63 Year
  Sex: Female
  Weight: 63 kg

DRUGS (3)
  1. ATORVASTATIN CALCIUM [Suspect]
     Indication: BLOOD CHOLESTEROL INCREASED
     Dosage: 20 MG, 1X/DAY
     Dates: start: 20110513, end: 20110609
  2. CALCIUM CITRATE [Concomitant]
     Dosage: UNK
     Dates: start: 20090101
  3. VITAMIN D [Concomitant]
     Dosage: UNK
     Dates: start: 20090101

REACTIONS (5)
  - OROPHARYNGEAL PAIN [None]
  - GASTRIC ULCER [None]
  - NASOPHARYNGITIS [None]
  - ABDOMINAL PAIN UPPER [None]
  - WEIGHT INCREASED [None]
